FAERS Safety Report 6727320-X (Version None)
Quarter: 2010Q2

REPORT INFORMATION
  Report Type: 
  Country: None (occurrence: None)
  Receive Date: 20100517
  Receipt Date: 20100511
  Transmission Date: 20101027
  Serious: Yes (Hospitalization)
  Sender: FDA-Public Use
  Company Number: US-JNJFOC-20100401954

PATIENT
  Sex: Female
  Weight: 45.81 kg

DRUGS (2)
  1. LEVAQUIN [Suspect]
     Indication: BRONCHITIS
     Route: 048
  2. DIOVAN [Concomitant]
     Indication: BLOOD PRESSURE
     Route: 048

REACTIONS (3)
  - BLOOD SODIUM DECREASED [None]
  - INSOMNIA [None]
  - MYOCARDIAL INFARCTION [None]
